FAERS Safety Report 8780694 (Version 1)
Quarter: 2012Q4

REPORT INFORMATION
  Report Type: 
  Country: GB (occurrence: GB)
  Receive Date: 20120913
  Receipt Date: 20120913
  Transmission Date: 20130627
  Serious: Yes (Other)
  Sender: FDA-Public Use
  Company Number: GB-BAYER-2012-093423

PATIENT
  Sex: Female

DRUGS (2)
  1. NIFEDIPINE [Suspect]
  2. FOLIC ACID [Concomitant]

REACTIONS (2)
  - Pre-eclampsia [None]
  - Oligohydramnios [None]
